FAERS Safety Report 8037844-3 (Version None)
Quarter: 2012Q1

REPORT INFORMATION
  Report Type: 
  Country: None (occurrence: None)
  Receive Date: 20120111
  Receipt Date: 20120106
  Transmission Date: 20120608
  Serious: Yes (Hospitalization)
  Sender: FDA-Public Use
  Company Number: PHHY2011CA96414

PATIENT
  Sex: Female

DRUGS (4)
  1. ZOLEDRONOC ACID [Suspect]
     Route: 042
     Dates: start: 20090714
  2. ENBREL [Concomitant]
     Dosage: 50 MG, UNK
  3. ZOLEDRONOC ACID [Suspect]
     Indication: OSTEOPOROSIS
     Dosage: UNK UKN, UNK
     Route: 042
     Dates: start: 20080812
  4. ZOLEDRONOC ACID [Suspect]
     Route: 042
     Dates: start: 20110120

REACTIONS (6)
  - GASTROOESOPHAGEAL REFLUX DISEASE [None]
  - MUSCULOSKELETAL STIFFNESS [None]
  - ABDOMINAL HERNIA [None]
  - MALAISE [None]
  - CHEST PAIN [None]
  - BALANCE DISORDER [None]
